FAERS Safety Report 5958109-7 (Version None)
Quarter: 2008Q4

REPORT INFORMATION
  Report Type: 
  Country: None (occurrence: None)
  Receive Date: 20081119
  Receipt Date: 20081119
  Transmission Date: 20090506
  Serious: Yes (Death, Hospitalization)
  Sender: FDA-Public Use
  Company Number: GB-ABBOTT-08P-167-0485142-00

PATIENT
  Sex: Female
  Weight: 69 kg

DRUGS (7)
  1. HUMIRA [Suspect]
     Indication: RHEUMATOID ARTHRITIS
     Dates: start: 20080403
  2. OMEPRAZOLE [Concomitant]
     Indication: GASTRIC DISORDER
  3. NICORANDIL [Concomitant]
     Indication: MYOCARDIAL ISCHAEMIA
  4. ACETYLSALICYLIC ACID SRT [Concomitant]
     Indication: MYOCARDIAL ISCHAEMIA
  5. FRUMIL [Concomitant]
     Indication: MYOCARDIAL ISCHAEMIA
  6. ATENOLOL [Concomitant]
     Indication: MYOCARDIAL ISCHAEMIA
  7. GLICAZIDE [Concomitant]
     Indication: DIABETES MELLITUS

REACTIONS (3)
  - CARDIAC ARREST [None]
  - MALAISE [None]
  - TUBERCULOSIS [None]
